FAERS Safety Report 5732652-8 (Version None)
Quarter: 2008Q2

REPORT INFORMATION
  Report Type: 
  Country: None (occurrence: None)
  Receive Date: 20080507
  Receipt Date: 20080422
  Transmission Date: 20081010
  Serious: Yes (Other)
  Sender: FDA-Public Use
  Company Number: 2008S1006866

PATIENT
  Age: 49 Year
  Sex: Female
  Weight: 65.318 kg

DRUGS (21)
  1. FENTANYL TRANSDERMAL SYSTEM [Suspect]
     Indication: BACK PAIN
     Dosage: 12 UG; EVERY HOUR; TRANSDERMAL, 12 UG; EVERY HOUR; TRANSDERMAL
     Route: 062
     Dates: start: 20080304, end: 20080305
  2. FENTANYL TRANSDERMAL SYSTEM [Suspect]
     Indication: INTERVERTEBRAL DISC PROTRUSION
     Dosage: 12 UG; EVERY HOUR; TRANSDERMAL, 12 UG; EVERY HOUR; TRANSDERMAL
     Route: 062
     Dates: start: 20080304, end: 20080305
  3. FENTANYL TRANSDERMAL SYSTEM [Suspect]
     Indication: BACK PAIN
     Dosage: 12 UG; EVERY HOUR; TRANSDERMAL, 12 UG; EVERY HOUR; TRANSDERMAL
     Route: 062
     Dates: start: 20080319, end: 20080319
  4. FENTANYL TRANSDERMAL SYSTEM [Suspect]
     Indication: INTERVERTEBRAL DISC PROTRUSION
     Dosage: 12 UG; EVERY HOUR; TRANSDERMAL, 12 UG; EVERY HOUR; TRANSDERMAL
     Route: 062
     Dates: start: 20080319, end: 20080319
  5. NORVASC [Concomitant]
  6. PLAVIX [Concomitant]
  7. PREVACID [Concomitant]
  8. ASPIRIN [Concomitant]
  9. ATENOLOL [Concomitant]
  10. AVAPRO [Concomitant]
  11. CELEBREX [Concomitant]
  12. SINGULAIR [Concomitant]
  13. NEURONTIN [Concomitant]
  14. PULMICORT [Concomitant]
  15. ENABLEX /01760401/ [Concomitant]
  16. FLUTICASONE [Concomitant]
  17. AMITRIPTYLINE HCL [Concomitant]
  18. HYDROXYZINE PAMOATE [Concomitant]
  19. FORMOTEROL FUMARATE [Concomitant]
  20. ALBUTEROL [Concomitant]
  21. AMBIEN CR [Concomitant]

REACTIONS (9)
  - ASTHENIA [None]
  - DIZZINESS [None]
  - DYSPNOEA [None]
  - FEELING ABNORMAL [None]
  - FEELING HOT [None]
  - GAIT DISTURBANCE [None]
  - MALAISE [None]
  - NAUSEA [None]
  - VOMITING [None]
